FAERS Safety Report 15067138 (Version 2)
Quarter: 2018Q2

REPORT INFORMATION
  Report Type: Spontaneous
  Country: BR (occurrence: BR)
  Receive Date: 20180626
  Receipt Date: 20180629
  Transmission Date: 20180711
  Serious: No
  Sender: FDA-Public Use
  Company Number: BR-PFIZER INC-2018252561

PATIENT
  Age: 64 Year
  Sex: Female

DRUGS (6)
  1. FRONTAL [Suspect]
     Active Substance: ALPRAZOLAM
     Indication: DYSPNOEA
  2. SERTRALINE [Concomitant]
     Active Substance: SERTRALINE HYDROCHLORIDE
     Dosage: UNK
     Dates: start: 1999
  3. ABLOK [Concomitant]
     Active Substance: ATENOLOL
     Indication: HYPERTENSION
     Dosage: UNK
     Dates: end: 2012
  4. ARADOIS [Concomitant]
     Active Substance: LOSARTAN POTASSIUM
     Indication: HYPERTENSION
     Dosage: UNK
     Dates: start: 2012
  5. FRONTAL [Suspect]
     Active Substance: ALPRAZOLAM
     Indication: EPILEPSY
     Dosage: UNK
  6. FRONTAL [Suspect]
     Active Substance: ALPRAZOLAM
     Indication: SEIZURE
     Dosage: 2 MG, DAILY AT NIGHT
     Dates: start: 1999

REACTIONS (8)
  - Somnolence [Not Recovered/Not Resolved]
  - Drug ineffective [Recovered/Resolved]
  - Withdrawal syndrome [Recovered/Resolved]
  - Incorrect dosage administered [Unknown]
  - Product use in unapproved indication [Unknown]
  - Feeling abnormal [Recovered/Resolved]
  - Nervousness [Recovered/Resolved]
  - Blood glucose increased [Recovered/Resolved]

NARRATIVE: CASE EVENT DATE: 1998
